FAERS Safety Report 5731580-1 (Version None)
Quarter: 2008Q2

REPORT INFORMATION
  Report Type: 
  Country: None (occurrence: None)
  Receive Date: 20080506
  Receipt Date: 20080506
  Transmission Date: 20081010
  Serious: Yes (Other)
  Sender: FDA-Public Use
  Company Number: None

PATIENT
  Sex: Female
  Weight: 56.6996 kg

DRUGS (1)
  1. SINGULAIR [Suspect]

REACTIONS (5)
  - ANXIETY [None]
  - FEELING ABNORMAL [None]
  - INSOMNIA [None]
  - NEGATIVE THOUGHTS [None]
  - SUICIDAL IDEATION [None]
